FAERS Safety Report 7711558-9 (Version None)
Quarter: 2011Q3

REPORT INFORMATION
  Report Type: 
  Country: None (occurrence: None)
  Receive Date: 20110826
  Receipt Date: 20110822
  Transmission Date: 20111222
  Serious: Yes (Other)
  Sender: FDA-Public Use
  Company Number: US-JNJFOC-20110609474

PATIENT
  Sex: Female
  Weight: 90.72 kg

DRUGS (6)
  1. DIOVAN [Concomitant]
     Indication: BLOOD PRESSURE
     Route: 048
     Dates: start: 19910101
  2. REMICADE [Suspect]
     Indication: RHEUMATOID ARTHRITIS
     Route: 042
     Dates: start: 20110101
  3. REMICADE [Suspect]
     Dosage: 2ND INFUSION
     Route: 042
     Dates: start: 20110523, end: 20110523
  4. PLAQUENIL [Concomitant]
     Indication: RHEUMATOID ARTHRITIS
     Route: 048
  5. TRIAMTERENE [Concomitant]
     Indication: DIURETIC THERAPY
     Route: 048
     Dates: start: 19910101
  6. OTHER THERAPEUTIC MEDICATION [Concomitant]
     Indication: BLOOD PRESSURE
     Route: 048
     Dates: start: 19910101

REACTIONS (7)
  - ERYTHEMA [None]
  - PYREXIA [None]
  - DYSKINESIA [None]
  - INFUSION RELATED REACTION [None]
  - CHILLS [None]
  - FEELING ABNORMAL [None]
  - RASH MACULAR [None]
